FAERS Safety Report 8153439-5 (Version None)
Quarter: 2012Q1

REPORT INFORMATION
  Report Type: 
  Country: None (occurrence: None)
  Receive Date: 20120221
  Receipt Date: 20120206
  Transmission Date: 20120608
  Serious: Yes (Death)
  Sender: FDA-Public Use
  Company Number: US-ROCHE-1037245

PATIENT
  Sex: Male
  Weight: 92.2 kg

DRUGS (20)
  1. ALDACTONE [Concomitant]
     Route: 048
  2. PRILOSEC [Concomitant]
     Route: 048
  3. PREDNISONE [Concomitant]
     Route: 048
  4. ALLOPURINOL [Concomitant]
     Route: 048
  5. METROGEL [Concomitant]
  6. LOVENOX [Concomitant]
     Dosage: 100 MG/ML
     Route: 058
  7. COMPAZINE [Concomitant]
     Route: 048
  8. MAG OXIDE [Concomitant]
     Route: 048
  9. OXYCODONE HCL [Concomitant]
     Dosage: 5-325 MG
     Route: 048
  10. TARCEVA [Suspect]
     Indication: BILE DUCT CANCER
     Route: 048
     Dates: start: 20111031, end: 20111204
  11. METFORMIN HCL [Concomitant]
     Route: 048
  12. ERGOCALCIFEROL [Concomitant]
     Route: 048
  13. BARIUM SULFATE [Concomitant]
     Route: 048
  14. TOPROL-XL [Concomitant]
     Route: 048
  15. PRAVASTATIN [Concomitant]
     Route: 048
  16. LASIX [Concomitant]
     Route: 048
  17. CIPROFLOXACIN [Concomitant]
     Route: 048
  18. DOCUSATE SODIUM [Concomitant]
     Route: 048
  19. AVASTIN [Suspect]
     Indication: BILE DUCT CANCER
     Route: 042
     Dates: start: 20111031, end: 20111204
  20. TRAMADOL HCL [Concomitant]
     Route: 048

REACTIONS (1)
  - HEPATIC FAILURE [None]
